FAERS Safety Report 7814265-7 (Version None)
Quarter: 2011Q4

REPORT INFORMATION
  Report Type: 
  Country: None (occurrence: None)
  Receive Date: 20111011
  Receipt Date: 20111003
  Transmission Date: 20120403
  Serious: Yes (Hospitalization, Other)
  Sender: FDA-Public Use
  Company Number: ABR_00259_2011

PATIENT
  Age: 75 Year
  Sex: Female

DRUGS (2)
  1. DIGOXIN [Suspect]
     Indication: CARDIAC FAILURE
     Dosage: (0.25 MG)
  2. ERYTHROMYCIN [Suspect]
     Indication: GASTRIC HYPOMOTILITY
     Dosage: (2000 MG, 2000 MG (500 MG, 1 IN 6 HR) INTRAVENOUS (NOT OTHERWISE SPECIFIED))
     Route: 042

REACTIONS (9)
  - NAUSEA [None]
  - HYPERKALAEMIA [None]
  - OFF LABEL USE [None]
  - GASTRIC HYPOMOTILITY [None]
  - BRADYCARDIA [None]
  - DRUG INTERACTION [None]
  - DIARRHOEA [None]
  - ATRIAL FIBRILLATION [None]
  - CARDIOACTIVE DRUG LEVEL ABOVE THERAPEUTIC [None]
